FAERS Safety Report 14226202 (Version 9)
Quarter: 2019Q4

REPORT INFORMATION
  Report Type: Report from Study
  Country: JP (occurrence: JP)
  Receive Date: 20171127
  Receipt Date: 20191202
  Transmission Date: 20200122
  Serious: Yes (Life-Threatening, Hospitalization, Other)
  Sender: FDA-Public Use
  Company Number: JP-PFIZER INC-2017507717

PATIENT
  Age: 11 Year
  Sex: Male
  Weight: 32.3 kg

DRUGS (10)
  1. OCTREOTIDE. [Concomitant]
     Active Substance: OCTREOTIDE
     Indication: LYMPHANGIOMA
     Dosage: UNK
     Route: 065
  2. BAKTAR [Concomitant]
     Active Substance: SULFAMETHOXAZOLE\TRIMETHOPRIM
     Indication: PROPHYLAXIS
     Dosage: UNK
     Route: 048
     Dates: end: 20170308
  3. RAPALIMUS [Suspect]
     Active Substance: SIROLIMUS
     Indication: LYMPHANGIOMA
     Dosage: 1 MG, 1X/DAY
     Route: 048
     Dates: start: 20161209, end: 20170105
  4. FERROUS CITRATE NA [Concomitant]
     Active Substance: SODIUM FERROUS CITRATE
     Indication: LYMPHANGIOMA
     Dosage: UNK
     Route: 048
     Dates: end: 20170118
  5. FAMOTIDINE DCI [Concomitant]
     Active Substance: FAMOTIDINE
     Indication: VOMITING
     Dosage: UNK
     Route: 048
     Dates: start: 20170206, end: 20170309
  6. HACHIAZULE /00317302/ [Concomitant]
     Indication: PROPHYLAXIS
     Dosage: UNK
     Route: 048
     Dates: end: 20170220
  7. RAPALIMUS [Suspect]
     Active Substance: SIROLIMUS
     Dosage: 1.5 MG, 1X/DAY
     Route: 048
     Dates: start: 20170106, end: 20170113
  8. RAPALIMUS [Suspect]
     Active Substance: SIROLIMUS
     Dosage: 1 MG, 1X/DAY
     Route: 048
     Dates: start: 20170123, end: 20170209
  9. L-CARBOCISTEINE [Concomitant]
     Active Substance: CARBOCYSTEINE
     Indication: COUGH
     Dosage: UNK
     Route: 048
     Dates: end: 20170206
  10. MUCOSOLVAN [Concomitant]
     Active Substance: AMBROXOL HYDROCHLORIDE
     Indication: COUGH
     Dosage: UNK
     Route: 048
     Dates: start: 20170207, end: 20170316

REACTIONS (5)
  - Disseminated intravascular coagulation [Recovered/Resolved]
  - Dyslipidaemia [Unknown]
  - Vomiting [Recovered/Resolved]
  - Haematoma [Recovered/Resolved with Sequelae]
  - Off label use [Unknown]

NARRATIVE: CASE EVENT DATE: 20161209
